FAERS Safety Report 17837723 (Version 3)
Quarter: 2021Q3

REPORT INFORMATION
  Report Type: Report from Study
  Country: US (occurrence: US)
  Receive Date: 20200528
  Receipt Date: 20210722
  Transmission Date: 20211014
  Serious: Yes (Hospitalization)
  Sender: FDA-Public Use
  Company Number: US-GILEAD-2020-0458519

PATIENT
  Age: 49 Year
  Sex: Male
  Weight: 71 kg

DRUGS (33)
  1. SODIUM CHLORIDE. [Concomitant]
     Active Substance: SODIUM CHLORIDE
     Dosage: 250,ML,ONCE
     Route: 042
     Dates: start: 20200330, end: 20200330
  2. SODIUM CHLORIDE. [Concomitant]
     Active Substance: SODIUM CHLORIDE
     Dosage: 250,ML,ONCE
     Route: 042
     Dates: start: 20200331, end: 20200331
  3. ACYCLOVIR [ACICLOVIR] [Concomitant]
     Active Substance: ACYCLOVIR
     Dosage: 800,MG,TWICE DAILY
     Route: 048
     Dates: start: 20200330, end: 20200407
  4. DEXTROSE SODIUM CHLORIDE [Concomitant]
     Dosage: CONTINUOUS;  0.45% (D5 1/2 NS),
     Route: 042
     Dates: start: 20200331, end: 20200401
  5. CYCLOPHOSPHAMIDE. [Suspect]
     Active Substance: CYCLOPHOSPHAMIDE
     Indication: BONE MARROW CONDITIONING REGIMEN
     Dosage: 500, QD
     Route: 042
     Dates: start: 20200325, end: 20200327
  6. FOSAPREPITANT [Concomitant]
     Active Substance: FOSAPREPITANT
     Dosage: 150,MG,ONCE
     Route: 042
     Dates: start: 20200325, end: 20200325
  7. SODIUM CHLORIDE. [Concomitant]
     Active Substance: SODIUM CHLORIDE
     Dosage: 1000,MG,ONCE
     Route: 042
     Dates: start: 20200327, end: 20200327
  8. SODIUM CHLORIDE. [Concomitant]
     Active Substance: SODIUM CHLORIDE
     Dosage: 1000,ML,ONCE
     Route: 042
     Dates: start: 20200407, end: 20200407
  9. AXICABTAGENE CILOLEUCEL [Suspect]
     Active Substance: AXICABTAGENE CILOLEUCEL
     Indication: DIFFUSE LARGE B-CELL LYMPHOMA REFRACTORY
     Dosage: 68 ML, ONCE
     Route: 042
     Dates: start: 20200330, end: 20200330
  10. RITUXIMAB. [Suspect]
     Active Substance: RITUXIMAB
     Dosage: 1 DOSAGE FORM, ONCE; ^700^
     Route: 042
     Dates: start: 20200518, end: 20200518
  11. DIPHENHYDRAMINE. [Concomitant]
     Active Substance: DIPHENHYDRAMINE
     Dosage: 25,MG,ONCE
     Route: 048
     Dates: start: 20200420, end: 20200420
  12. RITUXIMAB. [Suspect]
     Active Substance: RITUXIMAB
     Indication: DIFFUSE LARGE B-CELL LYMPHOMA
     Dosage: 1 DOSAGE FORM, ONCE; ^700^
     Route: 042
     Dates: start: 20200325, end: 20200325
  13. ACETAMINOPHEN. [Concomitant]
     Active Substance: ACETAMINOPHEN
     Dosage: 650,MG,ONCE
     Route: 048
     Dates: start: 20200420, end: 20200420
  14. ACYCLOVIR [ACICLOVIR] [Concomitant]
     Active Substance: ACYCLOVIR
     Dosage: 400,MG,DAILY
     Route: 048
     Dates: start: 20200330, end: 20200330
  15. MIRALAX [Concomitant]
     Active Substance: POLYETHYLENE GLYCOL 3350
     Dosage: ,,DAILY
     Route: 048
     Dates: start: 20190603
  16. ACETAMINOPHEN. [Concomitant]
     Active Substance: ACETAMINOPHEN
     Dosage: 650,MG,FOUR TIMES DAILY
     Route: 048
     Dates: start: 20200408, end: 20200414
  17. LEVETIRACETAM. [Concomitant]
     Active Substance: LEVETIRACETAM
     Dosage: 500,MG,ONCE
     Route: 048
     Dates: start: 20200414, end: 20200414
  18. FLUDARABINE [Suspect]
     Active Substance: FLUDARABINE PHOSPHATE
     Indication: BONE MARROW CONDITIONING REGIMEN
     Dosage: 30 QD
     Route: 042
     Dates: start: 20200325, end: 20200327
  19. RITUXIMAB. [Suspect]
     Active Substance: RITUXIMAB
     Dosage: 1 DOSAGE FORM, ONCE; ^700^
     Route: 042
     Dates: start: 20200615, end: 20200615
  20. DIPHENHYDRAMINE. [Concomitant]
     Active Substance: DIPHENHYDRAMINE
     Dosage: 25,MG,ONCE
     Route: 048
     Dates: start: 20200325, end: 20200325
  21. LEVETIRACETAM. [Concomitant]
     Active Substance: LEVETIRACETAM
     Dosage: 500,MG,TWICE DAILY
     Route: 048
     Dates: start: 20200330, end: 20200407
  22. SODIUM CHLORIDE. [Concomitant]
     Active Substance: SODIUM CHLORIDE
     Dosage: 1000,ML,ONCE
     Route: 042
     Dates: start: 20200326, end: 20200326
  23. PALONOSETRON. [Concomitant]
     Active Substance: PALONOSETRON HYDROCHLORIDE
     Dosage: 0.25,MG,ONCE
     Route: 042
     Dates: start: 20200325, end: 20200325
  24. AMOXICILLIN CLAVULANIC ACID [Concomitant]
     Active Substance: AMOXICILLIN\CLAVULANIC ACID
     Dosage: 1,OTHER,TWICE DAILY
     Route: 048
     Dates: start: 20200402, end: 20200406
  25. FLUCONAZOLE. [Concomitant]
     Active Substance: FLUCONAZOLE
     Dosage: 200,MG,DAILY
     Route: 048
     Dates: start: 20200402, end: 20200406
  26. RITUXIMAB. [Suspect]
     Active Substance: RITUXIMAB
     Dosage: 1 DOSAGE FORM, ONCE; ^700^
     Route: 042
     Dates: start: 20200420, end: 20200420
  27. RITUXIMAB. [Suspect]
     Active Substance: RITUXIMAB
     Dosage: 1 DOSAGE FORM, ONCE; ^700^
     Route: 042
     Dates: start: 20200713, end: 20200713
  28. RITUXIMAB. [Suspect]
     Active Substance: RITUXIMAB
     Dosage: 1 DOSAGE FORM, ONCE; ^700^
     Route: 042
     Dates: start: 20200810, end: 20200810
  29. POLYETHYLENE GLYCOL 3350. [Concomitant]
     Active Substance: POLYETHYLENE GLYCOL 3350
     Dosage: 1,OTHER,AS NECESSARY
     Route: 048
     Dates: start: 20191021
  30. ACETAMINOPHEN. [Concomitant]
     Active Substance: ACETAMINOPHEN
     Dosage: 650,MG,ONCE
     Route: 048
     Dates: start: 20200325, end: 20200325
  31. LEVETIRACETAM. [Concomitant]
     Active Substance: LEVETIRACETAM
     Dosage: 500,MG,TWICE DAILY
     Route: 048
     Dates: start: 20200408, end: 20200414
  32. SODIUM CHLORIDE. [Concomitant]
     Active Substance: SODIUM CHLORIDE
     Dosage: 1000,MG,ONCE
     Route: 042
     Dates: start: 20200325, end: 20200325
  33. AMOXICILLIN CLAVULANIC ACID [Concomitant]
     Active Substance: AMOXICILLIN\CLAVULANIC ACID
     Dosage: 1,OTHER,ONCE
     Route: 048
     Dates: start: 20200401, end: 20200401

REACTIONS (4)
  - Pyrexia [Recovered/Resolved]
  - Headache [Recovered/Resolved]
  - Somnolence [Recovered/Resolved]
  - Cytokine release syndrome [Recovered/Resolved]

NARRATIVE: CASE EVENT DATE: 20200408
